FAERS Safety Report 7141122-4 (Version None)
Quarter: 2010Q4

REPORT INFORMATION
  Report Type: 
  Country: None (occurrence: None)
  Receive Date: 20101207
  Receipt Date: 20101123
  Transmission Date: 20110411
  Serious: Yes (Hospitalization)
  Sender: FDA-Public Use
  Company Number: DE-RANBAXY-2010RR-39960

PATIENT
  Age: 74 Year
  Sex: Male
  Weight: 65.5 kg

DRUGS (8)
  1. ENALAPRIL [Suspect]
     Indication: CARDIAC FAILURE CHRONIC
     Dosage: UNK
     Route: 048
     Dates: start: 20080630
  2. CLEXANE [Suspect]
     Indication: ATRIAL FIBRILLATION
     Dosage: 0.6 ML, BID
     Route: 058
     Dates: start: 20080630
  3. XIPAMIDE [Suspect]
     Indication: CARDIAC FAILURE CONGESTIVE
     Dosage: 10 MG, BID
     Route: 048
     Dates: start: 20080630, end: 20080722
  4. TOREM [Suspect]
     Indication: HYPERTENSION
     Dosage: 10 MG, QD
     Route: 048
     Dates: start: 20080630
  5. THEOPHYLLINE [Concomitant]
     Indication: OBSTRUCTIVE AIRWAYS DISORDER
     Dosage: 200 MG, BID
     Route: 048
     Dates: start: 20000101
  6. URBASON [Concomitant]
     Indication: OBSTRUCTIVE AIRWAYS DISORDER
     Dosage: 10 MG, QD
     Route: 048
     Dates: start: 20080630
  7. SPIRIVA [Concomitant]
     Indication: OBSTRUCTIVE AIRWAYS DISORDER
     Dosage: 22.5 UG, QD
     Route: 055
     Dates: start: 20000101
  8. VIANI [Concomitant]
     Indication: OBSTRUCTIVE AIRWAYS DISORDER
     Dosage: 1 DF, BID
     Route: 055
     Dates: start: 20000101

REACTIONS (2)
  - HAEMATOMA [None]
  - RENAL FAILURE [None]
